FAERS Safety Report 8504425-4 (Version None)
Quarter: 2012Q3

REPORT INFORMATION
  Report Type: 
  Country: None (occurrence: None)
  Receive Date: 20120711
  Receipt Date: 20120703
  Transmission Date: 20120928
  Serious: Yes (Hospitalization)
  Sender: FDA-Public Use
  Company Number: ES-ABBOTT-12P-144-0953315-00

PATIENT
  Age: 78 Year
  Sex: Female

DRUGS (1)
  1. DEPAKENE [Suspect]
     Indication: BIPOLAR DISORDER
     Dosage: 100 MG DAILY GASTRO-RESISTANT TABLET
     Route: 048
     Dates: start: 20120425, end: 20120516

REACTIONS (5)
  - PLATELET COUNT DECREASED [None]
  - LEUKOPENIA [None]
  - NEUTROPENIA [None]
  - CONFUSIONAL STATE [None]
  - HYPONATRAEMIA [None]
